FAERS Safety Report 7118234-4 (Version None)
Quarter: 2010Q4

REPORT INFORMATION
  Report Type: 
  Country: None (occurrence: None)
  Receive Date: 20101123
  Receipt Date: 20101112
  Transmission Date: 20110411
  Serious: Yes (Death, Hospitalization)
  Sender: FDA-Public Use
  Company Number: US-BAYER-201026802NA

PATIENT
  Age: 60 Year
  Sex: Male
  Weight: 115 kg

DRUGS (20)
  1. NEXAVAR [Suspect]
     Indication: HEPATIC NEOPLASM MALIGNANT
     Dosage: TOTAL DAILY DOSE: 400 MG  UNIT DOSE: 200 MG
     Route: 048
     Dates: start: 20091021, end: 20100628
  2. OXYCONTIN [Concomitant]
     Indication: PAIN
     Dosage: TOTAL DAILY DOSE: 20 MG
     Route: 048
     Dates: start: 20100610
  3. PERCOCET [Concomitant]
     Indication: PAIN
     Dosage: EVERY 4 HR - AS USED DOSE: 5-325 MG
     Route: 048
     Dates: start: 20100716, end: 20100720
  4. PERCOCET [Concomitant]
     Dosage: AS USED DOSE: 5-325 MG
     Route: 048
     Dates: start: 20100610
  5. OMEPRAZOLE [Concomitant]
     Indication: GASTROOESOPHAGEAL REFLUX DISEASE
     Dosage: TOTAL DAILY DOSE: 20 MG  UNIT DOSE: 20 MG
     Route: 048
     Dates: start: 20100602
  6. NORVASC [Concomitant]
     Indication: HYPERTENSION
     Dosage: TOTAL DAILY DOSE: 5 MG  UNIT DOSE: 5 MG
     Route: 048
     Dates: start: 20100319
  7. NORVASC [Concomitant]
     Dosage: TOTAL DAILY DOSE: 2.5 MG  UNIT DOSE: 5 MG
     Route: 048
  8. LIDOCAINE [Concomitant]
     Indication: INCISION SITE PAIN
     Dosage: UNIT DOSE: 5 %
     Route: 062
     Dates: start: 20100217
  9. ACYCLOVIR [Concomitant]
     Indication: ANTIVIRAL PROPHYLAXIS
     Route: 048
     Dates: start: 20100122
  10. RAPAMUNE [Concomitant]
     Indication: PROPHYLAXIS AGAINST TRANSPLANT REJECTION
     Dosage: TOTAL DAILY DOSE: 3 MG
     Route: 048
  11. RAPAMUNE [Concomitant]
     Dosage: TOTAL DAILY DOSE: 3 MG
     Route: 048
     Dates: start: 20100716, end: 20100720
  12. RAPAMUNE [Concomitant]
     Dosage: AS USED: 1 MG
     Route: 048
     Dates: start: 20090212
  13. POLYETHYLENE GLYCOL [Concomitant]
     Indication: CONSTIPATION
     Dosage: AS USED: 17 G
     Route: 048
     Dates: start: 20090821
  14. TRIMETHOPRIM + SULFAMETHOXAZOLE [Concomitant]
     Indication: SINUSITIS
     Dosage: M-W-F - AS USED DOSE: 160-800 MG
     Route: 048
     Dates: start: 20090807
  15. MAGNESIUM OXIDE [Concomitant]
     Indication: VITAMIN SUPPLEMENTATION
     Dosage: TOTAL DAILY DOSE: 400 MG
     Route: 048
     Dates: start: 20090807
  16. ASA [Concomitant]
     Indication: PROPHYLAXIS
     Dosage: AS USED: 81 MG
     Route: 048
     Dates: start: 20100717
  17. HYDRALAZINE [Concomitant]
     Route: 040
     Dates: start: 20100716, end: 20100720
  18. HYDRALAZINE [Concomitant]
     Route: 040
     Dates: start: 20100626
  19. MORPHINE [Concomitant]
     Route: 040
     Dates: start: 20100626
  20. TYLENOL (CAPLET) [Concomitant]
     Route: 048
     Dates: start: 20100626

REACTIONS (3)
  - CEREBROVASCULAR ACCIDENT [None]
  - CONVULSION [None]
  - HEPATIC NEOPLASM MALIGNANT [None]
